FAERS Safety Report 8648160 (Version 3)
Quarter: 2012Q4

REPORT INFORMATION
  Report Type: 
  Country: BR (occurrence: BR)
  Receive Date: 20120703
  Receipt Date: 20121026
  Transmission Date: 20130627
  Serious: Yes (Other)
  Sender: FDA-Public Use
  Company Number: PHHY2012BR044525

PATIENT
  Age: 47 Year
  Sex: Female
  Weight: 67 kg

DRUGS (8)
  1. GILENYA [Suspect]
     Dosage: 1 DF, QD
     Route: 048
     Dates: start: 20120517
  2. STRESSTABS [Concomitant]
  3. OSCAL D [Concomitant]
  4. VALIUM [Concomitant]
     Dosage: 10 mg, UNK
  5. VITAMIN D [Concomitant]
  6. MESACOL [Concomitant]
  7. SILIFT [Concomitant]
  8. VITAMINS NOS [Concomitant]

REACTIONS (9)
  - Blood cholesterol increased [Recovering/Resolving]
  - Colitis [Recovering/Resolving]
  - Electrolyte imbalance [Unknown]
  - Diarrhoea [Recovering/Resolving]
  - Abdominal pain [Unknown]
  - Hepatic enzyme abnormal [Recovering/Resolving]
  - Lymphocyte count decreased [Recovering/Resolving]
  - Influenza [Recovered/Resolved]
  - Malaise [Recovered/Resolved]
